FAERS Safety Report 7115090-5 (Version None)
Quarter: 2010Q4

REPORT INFORMATION
  Report Type: 
  Country: None (occurrence: None)
  Receive Date: 20101117
  Receipt Date: 20101117
  Transmission Date: 20110411
  Serious: Yes (Other)
  Sender: FDA-Public Use
  Company Number: None

PATIENT
  Age: 46 Year
  Sex: Female
  Weight: 75.7507 kg

DRUGS (1)
  1. TRAMADOL HCL [Suspect]
     Indication: ARTHRITIS
     Dosage: 1 PILL/50 MG. ONCE DAILY PO
     Route: 048
     Dates: start: 20091110, end: 20101006

REACTIONS (8)
  - BODY TEMPERATURE INCREASED [None]
  - DIZZINESS [None]
  - DYSPEPSIA [None]
  - HAEMATEMESIS [None]
  - HYPERTENSION [None]
  - MALAISE [None]
  - NAUSEA [None]
  - VOMITING [None]
